FAERS Safety Report 8846448 (Version 1)
Quarter: 2012Q4

REPORT INFORMATION
  Report Type: Report from Study
  Country: JP (occurrence: JP)
  Receive Date: 20121017
  Receipt Date: 20121017
  Transmission Date: 20130627
  Serious: Yes (Other)
  Sender: FDA-Public Use
  Company Number: JP-VERTEX PHARMACEUTICAL INC.-2012-022961

PATIENT
  Age: 64 Year
  Sex: Male

DRUGS (12)
  1. VX-950 [Suspect]
     Indication: HEPATITIS C
     Dosage: 2250 mg, qd
     Route: 048
     Dates: start: 20120705, end: 20120802
  2. VX-950 [Suspect]
     Dosage: 1500 mg, qd
     Route: 048
     Dates: start: 20120803, end: 20120816
  3. VX-950 [Suspect]
     Dosage: 1500/ 1000 mg on alt. days
     Route: 048
     Dates: start: 20120817, end: 20120830
  4. VX-950 [Suspect]
     Dosage: 1000 mg, qd
     Route: 048
     Dates: start: 20120831, end: 20120926
  5. RIBAVIRIN [Suspect]
     Indication: HEPATITIS C
     Dosage: 600 mg, qd
     Route: 048
     Dates: start: 20120705, end: 20120809
  6. RIBAVIRIN [Suspect]
     Dosage: 400 mg, qd
     Route: 048
     Dates: start: 20120810, end: 20120823
  7. RIBAVIRIN [Suspect]
     Dosage: 200 mg, qd
     Route: 048
     Dates: start: 20120824, end: 20120927
  8. RIBAVIRIN [Suspect]
     Dosage: 600 mg, qd
     Route: 048
     Dates: start: 20120928
  9. PEGINTERFERON ALFA-2B [Suspect]
     Indication: HEPATITIS C
     Dosage: 1.5 ?g/kg, UNK
     Route: 058
     Dates: start: 20120705
  10. ALOSITOL [Concomitant]
     Dosage: 2 UNK, UNK
     Route: 048
     Dates: start: 20120705, end: 20120709
  11. FEBURIC [Concomitant]
     Dosage: 2 DF, qd
     Route: 048
     Dates: end: 20120913
  12. MICOMBI COMBINATION [Concomitant]
     Dosage: 1 DF, qd
     Route: 048

REACTIONS (1)
  - Haemoglobin decreased [Recovered/Resolved]
